FAERS Safety Report 19615715 (Version 1)
Quarter: 2021Q3

REPORT INFORMATION
  Report Type: Spontaneous
  Country: BE (occurrence: BE)
  Receive Date: 20210727
  Receipt Date: 20210727
  Transmission Date: 20211014
  Serious: Yes (Hospitalization)
  Sender: FDA-Public Use
  Company Number: BE-PFIZER INC-2021903403

PATIENT
  Sex: Female

DRUGS (2)
  1. MEDROL [Suspect]
     Active Substance: METHYLPREDNISOLONE
     Indication: CHRONIC SINUSITIS
     Dosage: UNK
  2. CLINDAMYCINE EG [Suspect]
     Active Substance: CLINDAMYCIN HYDROCHLORIDE
     Indication: CHRONIC SINUSITIS
     Dosage: 3 DF, 1X/DAY

REACTIONS (7)
  - Gastritis [Unknown]
  - Abdominal pain upper [Recovering/Resolving]
  - Contusion [Recovering/Resolving]
  - Hypersensitivity [Recovering/Resolving]
  - Gallbladder enlargement [Recovering/Resolving]
  - Off label use [Unknown]
  - Rash [Recovering/Resolving]
